FAERS Safety Report 20699877 (Version 1)
Quarter: 2022Q2

REPORT INFORMATION
  Report Type: Spontaneous
  Country: US (occurrence: None)
  Receive Date: 20220409
  Receipt Date: 20220409
  Transmission Date: 20220721
  Serious: Yes (unspecified)
  Sender: FDA-Public Use
  Company Number: None

PATIENT
  Age: 50 Year
  Sex: Female
  Weight: 46.8 kg

DRUGS (3)
  1. EUCRISA [Suspect]
     Active Substance: CRISABOROLE
     Indication: Eczema
     Dosage: OTHER QUANTITY : 100 USES;?FREQUENCY : TWICE A DAY;?
     Route: 061
     Dates: start: 20220113, end: 20220324
  2. zuretic [Concomitant]
  3. decongosten [Concomitant]

REACTIONS (6)
  - Application site pain [None]
  - Application site pruritus [None]
  - Herpes zoster [None]
  - Application site erythema [None]
  - Loss of personal independence in daily activities [None]
  - Application site swelling [None]

NARRATIVE: CASE EVENT DATE: 20220113
